FAERS Safety Report 8141199-3 (Version None)
Quarter: 2012Q1

REPORT INFORMATION
  Report Type: 
  Country: None (occurrence: None)
  Receive Date: 20120216
  Receipt Date: 20120214
  Transmission Date: 20120608
  Serious: Yes (Life-Threatening, Hospitalization)
  Sender: FDA-Public Use
  Company Number: CA-B.I. PHARMACEUTICALS,INC./RIDGEFIELD-2012-CN-00285CN

PATIENT
  Age: 40 Year
  Sex: Male
  Weight: 106 kg

DRUGS (6)
  1. PLAVIX [Concomitant]
     Route: 065
  2. CARBAMAZEPINE [Suspect]
     Dosage: 400 MG
     Route: 048
  3. CARBAMAZEPINE [Suspect]
     Dosage: 600 MG
     Route: 048
  4. CLARITIN [Concomitant]
     Route: 065
  5. CARBAMAZEPINE [Suspect]
     Dosage: 800 MG
     Route: 048
  6. PRADAXA [Suspect]
     Dosage: 300 MG
     Route: 048

REACTIONS (5)
  - BLOOD CREATINE PHOSPHOKINASE INCREASED [None]
  - LOW DENSITY LIPOPROTEIN INCREASED [None]
  - CEREBROVASCULAR ACCIDENT [None]
  - TRANSIENT ISCHAEMIC ATTACK [None]
  - ACTIVATED PARTIAL THROMBOPLASTIN TIME PROLONGED [None]
